FAERS Safety Report 10682123 (Version 1)
Quarter: 2014Q4

REPORT INFORMATION
  Report Type: Spontaneous
  Country: US (occurrence: None)
  Receive Date: 20141229
  Receipt Date: 20141229
  Transmission Date: 20150529
  Serious: Yes (Disabling)
  Sender: FDA-Public Use
  Company Number: None

PATIENT
  Age: 58 Year
  Sex: Male
  Weight: 90 kg

DRUGS (1)
  1. FINASTERIDE. [Suspect]
     Active Substance: FINASTERIDE
     Indication: PROSTATOMEGALY
     Dosage: 1 PILL
     Route: 048
     Dates: start: 20130310, end: 20131010

REACTIONS (2)
  - Sexual dysfunction [None]
  - Quality of life decreased [None]

NARRATIVE: CASE EVENT DATE: 20131010
